FAERS Safety Report 6919466-8 (Version None)
Quarter: 2010Q3

REPORT INFORMATION
  Report Type: 
  Country: None (occurrence: None)
  Receive Date: 20100811
  Receipt Date: 20100803
  Transmission Date: 20110219
  Serious: Yes (Other)
  Sender: FDA-Public Use
  Company Number: B0669242A

PATIENT
  Age: 66 Year
  Sex: Male

DRUGS (2)
  1. LAMOTRIGINE [Suspect]
     Indication: POST-TRAUMATIC EPILEPSY
     Dosage: 550MG PER DAY
  2. VALPROATE SODIUM [Concomitant]
     Indication: POST-TRAUMATIC EPILEPSY
     Dosage: 1200MG PER DAY

REACTIONS (1)
  - DRUG TOXICITY [None]
